FAERS Safety Report 18082555 (Version 2)
Quarter: 2020Q3

REPORT INFORMATION
  Report Type: Spontaneous
  Country: US (occurrence: US)
  Receive Date: 20200728
  Receipt Date: 20200813
  Transmission Date: 20201103
  Serious: Yes (Other)
  Sender: FDA-Public Use
  Company Number: US-009507513-2007USA009103

PATIENT
  Sex: Female

DRUGS (3)
  1. INVANZ [Suspect]
     Active Substance: ERTAPENEM SODIUM
  2. ORITAVANCIN DIPHOSPHATE [Suspect]
     Active Substance: ORITAVANCIN
     Dosage: INITIAL DOSE OF 1200 MILLIGRAM
  3. ORITAVANCIN DIPHOSPHATE [Suspect]
     Active Substance: ORITAVANCIN
     Dosage: 1200 MG OR 800 MG WEEKLY

REACTIONS (1)
  - Pancytopenia [Recovered/Resolved]
